FAERS Safety Report 5503019-2 (Version None)
Quarter: 2007Q4

REPORT INFORMATION
  Report Type: 
  Country: None (occurrence: None)
  Receive Date: 20071029
  Receipt Date: 20071015
  Transmission Date: 20080405
  Serious: Yes (Hospitalization)
  Sender: FDA-Public Use
  Company Number: 2006US001598

PATIENT
  Age: 57 Year
  Sex: Male
  Weight: 112.9 kg

DRUGS (7)
  1. AMEVIVE [Suspect]
     Indication: PSORIASIS
     Dosage: 15 MG, WEEKLY, INRAMUSCULAR
     Route: 030
     Dates: start: 20040315, end: 20040617
  2. DIOVAN [Concomitant]
  3. PLAVIX [Concomitant]
  4. TOPROL-XL [Concomitant]
  5. IMDUR [Concomitant]
  6. ASPIRIN [Concomitant]
  7. WELCHOL [Concomitant]

REACTIONS (6)
  - ANGINA PECTORIS [None]
  - BLOOD PRESSURE DECREASED [None]
  - INCISION SITE HAEMORRHAGE [None]
  - MYOCARDIAL ISCHAEMIA [None]
  - NO THERAPEUTIC RESPONSE [None]
  - SYNCOPE [None]
